FAERS Safety Report 7522828-1 (Version None)
Quarter: 2011Q2

REPORT INFORMATION
  Report Type: 
  Country: None (occurrence: None)
  Receive Date: 20110603
  Receipt Date: 20110523
  Transmission Date: 20111010
  Serious: Yes (Other)
  Sender: FDA-Public Use
  Company Number: GR-SANOFI-AVENTIS-2011SA032697

PATIENT

DRUGS (3)
  1. CAPECITABINE [Suspect]
     Indication: GASTRIC CANCER
     Dosage: ON DAYS 1 TO 7 OF 2 WEEK CYCLE
     Route: 065
  2. OXALIPLATIN [Suspect]
     Indication: GASTRIC CANCER
     Dosage: RECEIVED ON DAY 1
     Route: 065
  3. DOCETAXEL [Suspect]
     Indication: GASTRIC CANCER
     Dosage: ON DAY 1
     Route: 065

REACTIONS (2)
  - NEUTROPENIA [None]
  - NEUROTOXICITY [None]
